FAERS Safety Report 7911297-5 (Version None)
Quarter: 2011Q4

REPORT INFORMATION
  Report Type: 
  Country: None (occurrence: None)
  Receive Date: 20111114
  Receipt Date: 20111109
  Transmission Date: 20120403
  Serious: Yes (Other)
  Sender: FDA-Public Use
  Company Number: JP-B.I. PHARMACEUTICALS,INC./RIDGEFIELD-2011-BP-26004NB

PATIENT
  Age: 49 Year
  Sex: Male

DRUGS (2)
  1. TELMISARTAN/AMLODIPINE [Suspect]
     Indication: HYPERTENSION
     Dosage: TELMISARTAN 40 MG/AMLODIPINE BESILATE 5 MG
     Route: 048
     Dates: start: 20110618, end: 20111012
  2. RASILEZ [Suspect]
     Route: 048
     Dates: start: 20110806, end: 20111012

REACTIONS (2)
  - DRUG INEFFECTIVE [None]
  - AORTIC DISSECTION [None]
